FAERS Safety Report 18930208 (Version 2)
Quarter: 2021Q2

REPORT INFORMATION
  Report Type: Other
  Country: CA (occurrence: CA)
  Receive Date: 20210224
  Receipt Date: 20210519
  Transmission Date: 20210717
  Serious: Yes (Hospitalization)
  Sender: FDA-Public Use
  Company Number: CA-CELLTRION INC.-2021CA002232

PATIENT

DRUGS (7)
  1. DAPSONE. [Concomitant]
     Active Substance: DAPSONE
     Dosage: 100 MILLIGRAM, 1 EVERY 1 DAYS
     Route: 065
  2. PANTOLOC [PANTOPRAZOLE] [Concomitant]
     Active Substance: PANTOPRAZOLE SODIUM
     Dosage: 40 MILLIGRAM, 1 EVERY 1 DAYS
     Route: 065
  3. RITUXIMAB (UNKNOWN) [Suspect]
     Active Substance: RITUXIMAB
     Dosage: UNK
     Route: 042
  4. RITUXIMAB (UNKNOWN) [Suspect]
     Active Substance: RITUXIMAB
     Indication: GLOMERULONEPHRITIS
     Dosage: UNK, 1 EVERY 1 WEEKS
     Route: 042
  5. CARBOCAL [Concomitant]
     Active Substance: CALCIUM CARBONATE
     Dosage: UNK,  2 EVERY 1 DAYS
     Route: 065
  6. CALCIUM [Concomitant]
     Active Substance: CALCIUM
  7. FOSAMAX [Concomitant]
     Active Substance: ALENDRONATE SODIUM
     Dosage: 70 MILLIGRAM, 1 EVERY 1 WEEKS
     Route: 065

REACTIONS (2)
  - Diverticulitis [Unknown]
  - Off label use [Unknown]
